FAERS Safety Report 8599122-3 (Version None)
Quarter: 2012Q3

REPORT INFORMATION
  Report Type: 
  Country: None (occurrence: None)
  Receive Date: 20120816
  Receipt Date: 19950221
  Transmission Date: 20120928
  Serious: Yes (Hospitalization)
  Sender: FDA-Public Use
  Company Number: US-ROCHE-1101235

PATIENT
  Sex: Male

DRUGS (12)
  1. ACTIVASE [Suspect]
     Dosage: 100 CC HOUR
     Route: 041
  2. NITROGLYCERIN [Concomitant]
     Dosage: 9 CC PER HOUR
  3. NITROGLYCERIN [Concomitant]
     Dosage: 18 CC PER HOUR
  4. ACTIVASE [Suspect]
     Dosage: 15 CC PER HOUR
     Route: 041
  5. NITROGLYCERIN [Concomitant]
     Dosage: 12 CC PER HOUR
  6. NITROGLYCERIN [Concomitant]
     Dosage: 3 CC
     Route: 041
  7. NITROGLYCERIN [Concomitant]
     Dosage: 15 CC PER HOUR
  8. HEPARIN [Concomitant]
     Route: 040
  9. HEPARIN [Concomitant]
     Dosage: 25000 CC IN 500 CC DISTILLED WATER AT THE RATE OF 1000 CC PER HOUR
     Route: 041
  10. ACTIVASE [Suspect]
     Indication: ACUTE MYOCARDIAL INFARCTION
     Route: 040
  11. NITROGLYCERIN [Concomitant]
     Dosage: 6 CC PER HOUR
  12. HEPARIN [Concomitant]
     Dosage: 20 CC PER HOUR
     Route: 041

REACTIONS (2)
  - CHEST PAIN [None]
  - VOMITING [None]
